FAERS Safety Report 7874946-6 (Version None)
Quarter: 2011Q4

REPORT INFORMATION
  Report Type: 
  Country: None (occurrence: None)
  Receive Date: 20111031
  Receipt Date: 20111024
  Transmission Date: 20120403
  Serious: No
  Sender: FDA-Public Use
  Company Number: US-JNJFOC-20111011057

PATIENT
  Sex: Male
  Weight: 68.04 kg

DRUGS (5)
  1. DURAGESIC-100 [Suspect]
     Route: 062
     Dates: start: 20111001
  2. DURAGESIC-100 [Suspect]
     Route: 062
     Dates: start: 20110701, end: 20111001
  3. DURAGESIC-100 [Suspect]
     Indication: PAIN IN EXTREMITY
     Route: 062
     Dates: start: 20111001
  4. DURAGESIC-100 [Suspect]
     Route: 062
     Dates: start: 20111001
  5. DURAGESIC-100 [Suspect]
     Route: 062
     Dates: start: 20110701, end: 20111001

REACTIONS (2)
  - WRONG TECHNIQUE IN DRUG USAGE PROCESS [None]
  - INADEQUATE ANALGESIA [None]
